FAERS Safety Report 8645639 (Version 7)
Quarter: 2012Q4

REPORT INFORMATION
  Report Type: 
  Country: CA (occurrence: CA)
  Receive Date: 20120702
  Receipt Date: 20121130
  Transmission Date: 20130627
  Serious: Yes (Other)
  Sender: FDA-Public Use
  Company Number: PHHY2012CA005321

PATIENT
  Age: 54 None
  Sex: Female

DRUGS (4)
  1. GILENYA [Suspect]
     Indication: RELAPSING-REMITTING MULTIPLE SCLEROSIS
     Dosage: 0.5 mg, QD
     Route: 048
     Dates: start: 20120116
  2. GILENYA [Suspect]
     Dosage: 0.5 mg, QOD
     Route: 048
     Dates: start: 20120206, end: 20120714
  3. GILENYA [Suspect]
     Dosage: 0.5 mg, Q72H
     Route: 048
     Dates: start: 20120911, end: 20120915
  4. BACLOFEN [Concomitant]
     Dosage: 60 mg, daily

REACTIONS (25)
  - Cataract [Unknown]
  - Visual acuity reduced [Unknown]
  - Middle ear effusion [Recovering/Resolving]
  - Pain in jaw [Recovering/Resolving]
  - Ear pain [Recovering/Resolving]
  - Migraine [Recovering/Resolving]
  - Dizziness [Recovering/Resolving]
  - Headache [Not Recovered/Not Resolved]
  - Secondary hypertension [Not Recovered/Not Resolved]
  - Breast pain [Unknown]
  - Musculoskeletal pain [Unknown]
  - Poor quality sleep [Recovering/Resolving]
  - Eyelid irritation [Unknown]
  - Aggression [Unknown]
  - Oropharyngeal pain [Recovering/Resolving]
  - Pain in extremity [Recovering/Resolving]
  - Palpitations [Unknown]
  - Vertigo [Unknown]
  - Pain [Unknown]
  - Chest pain [Not Recovered/Not Resolved]
  - Nausea [Not Recovered/Not Resolved]
  - Sinusitis [Recovering/Resolving]
  - Multiple sclerosis relapse [Unknown]
  - Hypoaesthesia [Unknown]
  - Inappropriate schedule of drug administration [Unknown]
